FAERS Safety Report 5640554-0 (Version None)
Quarter: 2008Q1

REPORT INFORMATION
  Report Type: 
  Country: None (occurrence: None)
  Receive Date: 20080227
  Receipt Date: 20080218
  Transmission Date: 20080703
  Serious: Yes (Other)
  Sender: FDA-Public Use
  Company Number: PHRM2008FR00841

PATIENT
  Age: 52 Year
  Sex: Male

DRUGS (2)
  1. TETRACAINE 1% FAURE (NVO) [Suspect]
     Indication: LOCAL ANAESTHESIA
     Dosage: 1 DRP, ONCE/SINGLE
  2. BETADINE [Suspect]
     Dosage: 1 DF, ONCE/SINGLE

REACTIONS (2)
  - EYE PAIN [None]
  - ULCERATIVE KERATITIS [None]
